FAERS Safety Report 8484973-6 (Version None)
Quarter: 2012Q3

REPORT INFORMATION
  Report Type: 
  Country: None (occurrence: None)
  Receive Date: 20120703
  Receipt Date: 20120626
  Transmission Date: 20120928
  Serious: Yes (Other)
  Sender: FDA-Public Use
  Company Number: FR-PFIZER INC-2012152895

PATIENT
  Age: 61 Year
  Sex: Female
  Weight: 41 kg

DRUGS (25)
  1. VFEND [Suspect]
     Dosage: 300 MG, 2X/DAY
     Route: 048
     Dates: start: 20110505, end: 20110501
  2. VFEND [Suspect]
     Dosage: 250 MG, 2X/DAY
     Route: 048
     Dates: start: 20110501, end: 20110701
  3. PROGRAF [Concomitant]
     Dosage: 4 MG, 2X/DAY
  4. CERTICAN [Concomitant]
     Dosage: 0.5 MG, 2X/DAY
     Dates: end: 20110504
  5. PYRAZINAMIDE [Concomitant]
     Dosage: 150 MG DAILY
     Route: 048
     Dates: start: 20110524, end: 20110705
  6. VFEND [Suspect]
     Indication: BRONCHOPULMONARY ASPERGILLOSIS
     Dosage: 200 MG, 2X/DAY
     Route: 048
     Dates: start: 20101001, end: 20110504
  7. BACTRIM DS [Concomitant]
     Dosage: 3 DOSAGE FORMS PER WEEK
     Dates: end: 20110701
  8. PYRAZINAMIDE [Concomitant]
     Indication: TUBERCULOSIS
     Dosage: 1000 MG DAILY
     Route: 048
     Dates: start: 20110505
  9. MYAMBUTOL [Concomitant]
     Indication: TUBERCULOSIS
     Dosage: 400 MG, 2X/DAY
     Route: 048
     Dates: start: 20110505, end: 20110705
  10. PROGRAF [Concomitant]
     Dosage: 0.5 MG (FREQUENCY NOT STATED)
  11. PROGRAF [Concomitant]
     Dosage: 2 MG, 2X/DAY
     Dates: end: 20110504
  12. PREDNISONE TAB [Concomitant]
     Dosage: 5 MG, 1X/DAY
  13. VALGANCICLOVIR [Concomitant]
     Dosage: 450 MG DAILY
  14. NEXIUM [Concomitant]
     Dosage: 20 MG, 1X/DAY
  15. PROGRAF [Concomitant]
     Dosage: 1 MG, 2X/DAY
     Dates: start: 20110601
  16. CERTICAN [Concomitant]
     Dosage: 1.5 MG, 2X/DAY
  17. ZITHROMAX [Concomitant]
     Dosage: 500 MG DAILY
     Dates: end: 20110701
  18. PRAVASTATIN [Concomitant]
     Dosage: 20 MG, 1X/DAY
     Dates: end: 20110701
  19. IRBESARTAN [Concomitant]
     Dosage: 75 MG
  20. ANSATIPIN [Concomitant]
     Indication: TUBERCULOSIS
     Dosage: 150 MG DAILY
     Dates: start: 20110505, end: 20110705
  21. VFEND [Suspect]
     Dosage: UNK
     Route: 048
     Dates: end: 20110906
  22. PROGRAF [Concomitant]
     Dosage: 2 MG, 2X/DAY
     Dates: start: 20110505
  23. CERTICAN [Concomitant]
     Dosage: 0.75 MG, 2X/DAY
     Dates: start: 20110505
  24. VALGANCICLOVIR [Concomitant]
     Dosage: 900 MG DAILY
  25. RIMIFON [Concomitant]
     Indication: TUBERCULOSIS
     Dosage: 200 MG DAILY
     Route: 048
     Dates: start: 20110505, end: 20110705

REACTIONS (1)
  - DEAFNESS BILATERAL [None]
